FAERS Safety Report 23649334 (Version 1)
Quarter: 2024Q1

REPORT INFORMATION
  Report Type: Spontaneous
  Country: US (occurrence: US)
  Receive Date: 20240319
  Receipt Date: 20240319
  Transmission Date: 20240410
  Serious: No
  Sender: FDA-Public Use
  Company Number: US-PFIZER INC-202400066783

PATIENT
  Age: 42 Year
  Sex: Male

DRUGS (6)
  1. XELJANZ XR [Suspect]
     Active Substance: TOFACITINIB CITRATE
     Indication: Psoriatic arthropathy
     Dosage: TAKE 1 TABLET ONCE DAILY
     Route: 048
  2. TRIAMCINOLONE ACETONIDE [Concomitant]
     Active Substance: TRIAMCINOLONE ACETONIDE
  3. ALLOPURINOL [Concomitant]
     Active Substance: ALLOPURINOL
  4. COLCHICINE [Concomitant]
     Active Substance: COLCHICINE
  5. FOLIC ACID [Concomitant]
     Active Substance: FOLIC ACID
  6. TOLCAPONE [Concomitant]
     Active Substance: TOLCAPONE

REACTIONS (1)
  - Gout [Unknown]
